FAERS Safety Report 23753049 (Version 1)
Quarter: 2024Q2

REPORT INFORMATION
  Report Type: Spontaneous
  Country: US (occurrence: US)
  Receive Date: 20240417
  Receipt Date: 20240417
  Transmission Date: 20240716
  Serious: Yes (Other)
  Sender: FDA-Public Use
  Company Number: US-ORGANON-O2404USA000639

PATIENT
  Age: 35 Year

DRUGS (1)
  1. NEXPLANON [Suspect]
     Active Substance: ETONOGESTREL
     Indication: Contraception
     Dosage: 1 IMPLANT
     Route: 059
     Dates: start: 20200714

REACTIONS (4)
  - Device dislocation [Not Recovered/Not Resolved]
  - Complication associated with device [Not Recovered/Not Resolved]
  - Implant site scar [Unknown]
  - Incorrect product administration duration [Unknown]

NARRATIVE: CASE EVENT DATE: 20230714
